FAERS Safety Report 4550104-8 (Version None)
Quarter: 2005Q1

REPORT INFORMATION
  Report Type: 
  Country: None (occurrence: None)
  Receive Date: 20050110
  Receipt Date: 20041228
  Transmission Date: 20050727
  Serious: Yes (Other)
  Sender: FDA-Public Use
  Company Number: 2004-DE-06343GD

PATIENT

DRUGS (5)
  1. CLONIDINE [Suspect]
     Indication: POSTOPERATIVE ANALGESIA
     Dosage: 1.0 MCG/ML
     Route: 008
  2. BUPIVACAINE [Suspect]
     Indication: POSTOPERATIVE ANALGESIA
     Dosage: 0.5 MG/ML
     Route: 008
  3. FENTANYL [Suspect]
     Indication: POSTOPERATIVE ANALGESIA
     Dosage: 2.1 MCG/ML
     Route: 008
  4. OXYGEN (OXYGEN) [Concomitant]
  5. LACTATED RINGER'S SOLUTION (SODIUM CHLORIDE COMPOUND INJECTION) (LO) [Concomitant]

REACTIONS (5)
  - DRUG TOXICITY [None]
  - IATROGENIC INJURY [None]
  - NERVE INJURY [None]
  - PARESIS [None]
  - POST PROCEDURAL COMPLICATION [None]
